FAERS Safety Report 9015050 (Version 1)
Quarter: 2013Q1

REPORT INFORMATION
  Report Type: Spontaneous
  Country: US (occurrence: None)
  Receive Date: 20130109
  Receipt Date: 20130109
  Transmission Date: 20140127
  Serious: Yes (Hospitalization)
  Sender: FDA-Public Use
  Company Number: None

PATIENT
  Sex: Male
  Weight: 85.1 kg

DRUGS (2)
  1. CYTARABINE [Suspect]
     Dates: start: 20130101
  2. DAUNORUBICIN [Suspect]
     Dates: start: 20121227

REACTIONS (3)
  - Septic shock [None]
  - Neutropenic colitis [None]
  - Multi-organ failure [None]
